FAERS Safety Report 9793575 (Version 1)
Quarter: 2014Q1

REPORT INFORMATION
  Report Type: Spontaneous
  Country: US (occurrence: US)
  Receive Date: 20140102
  Receipt Date: 20140102
  Transmission Date: 20141002
  Serious: No
  Sender: FDA-Public Use
  Company Number: US-AMGEN-USASP2013086021

PATIENT
  Age: 33 Year
  Sex: Female

DRUGS (6)
  1. ENBREL [Suspect]
     Indication: PSORIASIS
     Dosage: 50 MG, 2 TIMES/WK
     Route: 065
     Dates: start: 20131125
  2. PULMICORT [Concomitant]
  3. ALBUTEROL                          /00139501/ [Concomitant]
  4. PRILOSEC                           /00661201/ [Concomitant]
  5. ZANTAC [Concomitant]
  6. ATIVAN [Concomitant]

REACTIONS (1)
  - Dyspnoea [Unknown]
